FAERS Safety Report 9266319 (Version 1)
Quarter: 2013Q2

REPORT INFORMATION
  Report Type: Spontaneous
  Country: CH (occurrence: CH)
  Receive Date: 20130502
  Receipt Date: 20130502
  Transmission Date: 20140414
  Serious: Yes (Other)
  Sender: FDA-Public Use
  Company Number: CH-JNJFOC-20130413603

PATIENT
  Age: 32 Year
  Sex: Female

DRUGS (2)
  1. GOLIMUMAB [Suspect]
     Indication: SPONDYLOARTHROPATHY
     Route: 058
  2. GLICLAZIDE [Concomitant]
     Indication: TYPE 2 DIABETES MELLITUS
     Route: 065

REACTIONS (1)
  - Takayasu^s arteritis [Unknown]
